FAERS Safety Report 4876587-1 (Version None)
Quarter: 2005Q4

REPORT INFORMATION
  Report Type: 
  Country: None (occurrence: None)
  Receive Date: 20051206
  Receipt Date: 20051020
  Transmission Date: 20060501
  Serious: No
  Sender: FDA-Public Use
  Company Number: USA0510111468

PATIENT
  Age: 60 Year
  Sex: Female

DRUGS (4)
  1. CYMBALTA [Suspect]
     Dosage: 60 MG DAY
  2. LIPITOR [Concomitant]
  3. AVANDIA [Concomitant]
  4. SYNTHROID [Concomitant]

REACTIONS (4)
  - FEELING ABNORMAL [None]
  - FEELING HOT [None]
  - HYPERHIDROSIS [None]
  - TREMOR [None]
